FAERS Safety Report 9542133 (Version 1)
Quarter: 2013Q3

REPORT INFORMATION
  Report Type: Spontaneous
  Country: US (occurrence: None)
  Receive Date: 20130919
  Receipt Date: 20130919
  Transmission Date: 20140515
  Serious: Yes (Hospitalization, Disabling)
  Sender: FDA-Public Use
  Company Number: None

PATIENT
  Age: 47 Year
  Sex: Male
  Weight: 81.65 kg

DRUGS (1)
  1. ENBREL [Suspect]
     Indication: ANKYLOSING SPONDYLITIS
     Dosage: WEEKLY INECTION
     Dates: start: 20110911, end: 20130101

REACTIONS (8)
  - Tremor [None]
  - Multiple sclerosis [None]
  - Muscle spasms [None]
  - Paraesthesia [None]
  - Pain in extremity [None]
  - Pain in extremity [None]
  - Nausea [None]
  - Dizziness [None]
